FAERS Safety Report 5952913-7 (Version None)
Quarter: 2008Q4

REPORT INFORMATION
  Report Type: 
  Country: None (occurrence: None)
  Receive Date: 20081114
  Receipt Date: 20081103
  Transmission Date: 20090506
  Serious: Yes (Other)
  Sender: FDA-Public Use
  Company Number: US-AVENTIS-200817675US

PATIENT
  Sex: Male

DRUGS (1)
  1. LASIX [Suspect]

REACTIONS (2)
  - OEDEMA PERIPHERAL [None]
  - RENAL FAILURE ACUTE [None]
